FAERS Safety Report 20091165 (Version 2)
Quarter: 2021Q4

REPORT INFORMATION
  Report Type: Spontaneous
  Country: TR (occurrence: TR)
  Receive Date: 20211119
  Receipt Date: 20211218
  Transmission Date: 20220303
  Serious: Yes (Other)
  Sender: FDA-Public Use
  Company Number: TR-LUPIN PHARMACEUTICALS INC.-2021-22664

PATIENT
  Age: 22 Year
  Sex: Female

DRUGS (9)
  1. METHYLPREDNISOLONE [Suspect]
     Active Substance: METHYLPREDNISOLONE
     Indication: Pustular psoriasis
     Dosage: 1.5 MILLIGRAM/KILOGRAM, QD
     Route: 065
  2. METHYLPREDNISOLONE [Suspect]
     Active Substance: METHYLPREDNISOLONE
     Dosage: ON DAY 10 OF TREATMENT
     Route: 065
  3. METHYLPREDNISOLONE [Suspect]
     Active Substance: METHYLPREDNISOLONE
     Dosage: 2 MILLIGRAM/KILOGRAM, QD
     Route: 065
  4. METHYLPREDNISOLONE [Suspect]
     Active Substance: METHYLPREDNISOLONE
     Dosage: 1.5 MILLIGRAM/KILOGRAM, QD
     Route: 065
  5. PIPERACILLIN SODIUM\TAZOBACTAM SODIUM [Suspect]
     Active Substance: PIPERACILLIN SODIUM\TAZOBACTAM SODIUM
     Indication: Evidence based treatment
     Dosage: UNK
     Route: 042
  6. INFLIXIMAB [Suspect]
     Active Substance: INFLIXIMAB
     Indication: Pustular psoriasis
     Dosage: 5 MILLIGRAM/KILOGRAM (300 MG)
     Route: 065
  7. ISONIAZID [Suspect]
     Active Substance: ISONIAZID
     Indication: Mycobacterial infection
     Dosage: 300 MILLIGRAM, QD
     Route: 065
  8. VALACYCLOVIR HYDROCHLORIDE [Suspect]
     Active Substance: VALACYCLOVIR HYDROCHLORIDE
     Indication: Herpes virus infection
     Dosage: 1 GRAM, BID
     Route: 048
  9. MUPIROCIN [Suspect]
     Active Substance: MUPIROCIN
     Indication: Herpes virus infection
     Dosage: UNK
     Route: 061

REACTIONS (3)
  - Rebound effect [Recovered/Resolved]
  - Premature labour [Unknown]
  - Exposure during pregnancy [Unknown]
